FAERS Safety Report 5087704-5 (Version None)
Quarter: 2006Q3

REPORT INFORMATION
  Report Type: 
  Country: None (occurrence: None)
  Receive Date: 20060822
  Receipt Date: 20060822
  Transmission Date: 20061208
  Serious: Yes (Other)
  Sender: FDA-Public Use
  Company Number: None

PATIENT
  Age: 49 Year
  Sex: Female
  Weight: 49.8957 kg

DRUGS (1)
  1. ZICAM COLD REMEDY ZINC MATRIXX INITIATIVES GLUCONATE NASAL GEL [Suspect]
     Indication: NASOPHARYNGITIS
     Dosage: 4 DAYS, TWICE DAILY, NASAL SPRAY
     Route: 045
     Dates: start: 20041201, end: 20041204

REACTIONS (2)
  - AGEUSIA [None]
  - ANOSMIA [None]
